FAERS Safety Report 15542329 (Version 2)
Quarter: 2018Q4

REPORT INFORMATION
  Report Type: Spontaneous
  Country: US (occurrence: US)
  Receive Date: 20181023
  Receipt Date: 20181202
  Transmission Date: 20190205
  Serious: Yes (Other)
  Sender: FDA-Public Use
  Company Number: US-TEVA-2018-US-966566

PATIENT
  Age: 60 Year
  Sex: Female

DRUGS (5)
  1. METHOTREXATE. [Suspect]
     Active Substance: METHOTREXATE
     Dosage: RECEIVED 800 MG, 1600 MG, AND 2400 MG DURING THE 1ST, 2ND AND 3RD YEAR, RESPECTIVELY.
     Route: 048
  2. FOLIC ACID. [Concomitant]
     Active Substance: FOLIC ACID
     Indication: SUPPLEMENTATION THERAPY
     Dosage: 1 MILLIGRAM DAILY; EXCEPT ON THE DAYS WHEN SHE TOOK METHOTREXATE.
     Route: 048
  3. PREDNISONE. [Concomitant]
     Active Substance: PREDNISONE
     Indication: ANTIINFLAMMATORY THERAPY
     Route: 065
  4. CLARITHROMYCIN. [Concomitant]
     Active Substance: CLARITHROMYCIN
     Route: 048
  5. METHOTREXATE. [Suspect]
     Active Substance: METHOTREXATE
     Indication: BENIGN FAMILIAL PEMPHIGUS
     Dosage: RECEIVED 800 MG, 1600 MG, AND 2400 MG DURING THE 1ST, 2ND AND 3RD YEAR, RESPECTIVELY.
     Route: 048

REACTIONS (2)
  - Nasal mucosal ulcer [Unknown]
  - Nasal septum perforation [Not Recovered/Not Resolved]
